FAERS Safety Report 24880013 (Version 1)
Quarter: 2025Q1

REPORT INFORMATION
  Report Type: Spontaneous
  Country: US (occurrence: None)
  Receive Date: 20250123
  Receipt Date: 20250123
  Transmission Date: 20250408
  Serious: Yes (Hospitalization)
  Sender: FDA-CTU
  Company Number: None

PATIENT
  Sex: Female

DRUGS (4)
  1. NUCALA [Suspect]
     Active Substance: MEPOLIZUMAB
     Indication: Asthma
     Dosage: FREQUENCY : MONTHLY;?
     Route: 042
  2. ASPIRIN LOW TAB 81 MG EC [Concomitant]
  3. ASPIRIN LOW TAB 81 MG EC [Concomitant]
  4. TRELEGY AER 100MCG [Concomitant]

REACTIONS (2)
  - Maternal exposure during pregnancy [None]
  - Asthma [None]
